FAERS Safety Report 8184077-6 (Version None)
Quarter: 2012Q1

REPORT INFORMATION
  Report Type: 
  Country: None (occurrence: None)
  Receive Date: 20120305
  Receipt Date: 20120227
  Transmission Date: 20120608
  Serious: Yes (Death)
  Sender: FDA-Public Use
  Company Number: CHPA2012US003907

PATIENT
  Age: 39 Year
  Sex: Male

DRUGS (4)
  1. CYCLOBENZAPRINE [Suspect]
     Dosage: UNK,UNK
     Route: 048
  2. MIRTAZAPINE [Suspect]
     Dosage: UNK,UNK
     Route: 048
  3. CLONAZEPAM [Suspect]
     Dosage: UNK,UNK
     Route: 048
  4. SCOPALAMINIE HYDROBROMIDE [Suspect]
     Dosage: UNK,UNK
     Route: 048

REACTIONS (1)
  - COMPLETED SUICIDE [None]
